FAERS Safety Report 6134426-5 (Version None)
Quarter: 2009Q1

REPORT INFORMATION
  Report Type: 
  Country: None (occurrence: None)
  Receive Date: 20090327
  Receipt Date: 20090225
  Transmission Date: 20090719
  Serious: No
  Sender: FDA-Public Use
  Company Number: US-BAYER-200813150BCC

PATIENT
  Age: 72 Year
  Sex: Female
  Weight: 90 kg

DRUGS (4)
  1. ALEVE [Suspect]
     Indication: PROCEDURAL PAIN
     Dosage: AS USED: 440-660 MG  UNIT DOSE: 220 MG
     Route: 048
     Dates: start: 20080101
  2. ALEVE [Suspect]
     Indication: PROCEDURAL PAIN
     Dosage: AS USED: 440-660 MG  UNIT DOSE: 220 MG
     Route: 048
     Dates: start: 20080101
  3. LORAZEPAM [Concomitant]
  4. ACIPHEX [Concomitant]

REACTIONS (2)
  - ABDOMINAL PAIN [None]
  - BLADDER PAIN [None]
